FAERS Safety Report 5242566-8 (Version None)
Quarter: 2007Q1

REPORT INFORMATION
  Report Type: 
  Country: None (occurrence: None)
  Receive Date: 20070221
  Receipt Date: 20070206
  Transmission Date: 20070707
  Serious: Yes (Life-Threatening, Other)
  Sender: FDA-Public Use
  Company Number: TW-KINGPHARMUSA00001-K200700146

PATIENT

DRUGS (1)
  1. PITRESSIN [Suspect]
     Indication: MYOMECTOMY

REACTIONS (2)
  - BRADYCARDIA [None]
  - CARDIAC ARREST [None]
